FAERS Safety Report 4506823-2 (Version None)
Quarter: 2004Q4

REPORT INFORMATION
  Report Type: 
  Country: None (occurrence: None)
  Receive Date: 20041122
  Receipt Date: 20041110
  Transmission Date: 20050328
  Serious: Yes (Hospitalization)
  Sender: FDA-Public Use
  Company Number: JP-GLAXOSMITHKLINE-B0356809A

PATIENT
  Age: 30 Year
  Sex: Male

DRUGS (9)
  1. ZOVIRAX [Suspect]
     Dosage: 500MG PER DAY
     Route: 042
     Dates: start: 20040227, end: 20040303
  2. OXATOMIDE [Suspect]
     Indication: PRURITUS
     Dosage: 30MG TWICE PER DAY
     Route: 048
     Dates: start: 20040227, end: 20040311
  3. HYDROXYZINE HCL [Suspect]
     Indication: PRURITUS
     Dosage: 25MG PER DAY
     Route: 048
     Dates: start: 20040229, end: 20040304
  4. PARACETAMOL [Suspect]
     Indication: PYREXIA
     Dosage: 400MG SEE DOSAGE TEXT
     Route: 048
     Dates: start: 20040227, end: 20040301
  5. SOLITA-T NO.3 [Suspect]
     Indication: FLUID REPLACEMENT
     Dosage: 500ML SEE DOSAGE TEXT
     Route: 042
     Dates: start: 20040227, end: 20040302
  6. NEO-MINOPHAGEN C [Suspect]
     Indication: PRURITUS
     Dosage: 20ML PER DAY
     Route: 042
     Dates: start: 20040227, end: 20040301
  7. UNSPECIFIED DRUG [Suspect]
     Indication: PRURITUS
     Dosage: 1ML PER DAY
     Route: 042
     Dates: start: 20040227, end: 20040301
  8. METHYLPREDNISOLONE [Suspect]
     Indication: RASH
     Dosage: 125MG TWICE PER DAY
     Route: 042
     Dates: start: 20040228, end: 20040228
  9. DICLOFENAC [Suspect]
     Indication: PYREXIA
     Dosage: 50MG PER DAY
     Route: 054
     Dates: start: 20040227, end: 20040227

REACTIONS (11)
  - ALANINE AMINOTRANSFERASE INCREASED [None]
  - ASPARTATE AMINOTRANSFERASE INCREASED [None]
  - BLOOD BILIRUBIN INCREASED [None]
  - CONDITION AGGRAVATED [None]
  - EOSINOPHIL COUNT INCREASED [None]
  - GAMMA-GLUTAMYLTRANSFERASE INCREASED [None]
  - HEPATIC FUNCTION ABNORMAL [None]
  - HYPERSENSITIVITY [None]
  - LIVER DISORDER [None]
  - MALAISE [None]
  - PYREXIA [None]
